FAERS Safety Report 9552379 (Version 1)
Quarter: 2013Q3

REPORT INFORMATION
  Report Type: Spontaneous
  Country: US (occurrence: None)
  Receive Date: 20130923
  Receipt Date: 20130923
  Transmission Date: 20140515
  Serious: Yes (Hospitalization)
  Sender: FDA-Public Use
  Company Number: IPC201309-00361

PATIENT
  Age: 54 Year
  Sex: Female

DRUGS (7)
  1. METFORMIN HYDROCHLORIDE (METFORMIN HYDROCHLORIDE) (METFORMIN HYDROCHLORIDE) [Suspect]
  2. ASPIRIN (ASPIRIN) (ASPIRIN) [Suspect]
     Indication: PAIN
  3. ENALAPRIL (ENALAPRIL) (ENALAPRIL) [Suspect]
  4. GLIMEPIRIDE (GLIMEPIRIDE) (GLIMEPIRIDE) [Suspect]
  5. NIMESULIDE (NIMESULIDE) (NIMESULIDE) [Suspect]
  6. IMIPRAMINE (IMIPRAMINE) (IMIPRAMINE) [Suspect]
  7. IBUPROFEN (IBUPROFEN) (IBUPROFEN) [Suspect]

REACTIONS (42)
  - Lactic acidosis [None]
  - Sepsis [None]
  - Cardiogenic shock [None]
  - Cardiac failure [None]
  - Toxicity to various agents [None]
  - Atrial fibrillation [None]
  - Pancreatitis acute [None]
  - Leukocytosis [None]
  - Hyperphosphataemia [None]
  - Renal failure acute [None]
  - Abdominal pain [None]
  - Vomiting [None]
  - Confusional state [None]
  - Malaise [None]
  - Asthenia [None]
  - Chills [None]
  - Skin warm [None]
  - Hypophagia [None]
  - Dyspnoea [None]
  - Confusional state [None]
  - Unresponsive to stimuli [None]
  - Respiratory rate increased [None]
  - Mental status changes [None]
  - Respiratory distress [None]
  - Gastrointestinal disorder [None]
  - Blood glucose increased [None]
  - Haematocrit decreased [None]
  - Haemoglobin decreased [None]
  - White blood cell count increased [None]
  - Neutrophil percentage increased [None]
  - Lymphocyte percentage decreased [None]
  - Metamyelocyte percentage increased [None]
  - Platelet count increased [None]
  - Red blood cell count decreased [None]
  - Mean cell volume increased [None]
  - Activated partial thromboplastin time prolonged [None]
  - Prothrombin time prolonged [None]
  - Blood potassium increased [None]
  - Blood sodium increased [None]
  - Blood chloride decreased [None]
  - Blood urea increased [None]
  - Blood albumin increased [None]
